FAERS Safety Report 5486449-7 (Version None)
Quarter: 2007Q4

REPORT INFORMATION
  Report Type: 
  Country: None (occurrence: None)
  Receive Date: 20071016
  Receipt Date: 20071011
  Transmission Date: 20080405
  Serious: Yes (Other)
  Sender: FDA-Public Use
  Company Number: A0687171A

PATIENT
  Age: 46 Year
  Sex: Female

DRUGS (12)
  1. CARVEDILOL [Suspect]
     Route: 048
     Dates: start: 20070901, end: 20071001
  2. CARDIZEM [Concomitant]
  3. PLAVIX [Concomitant]
  4. LOVASTATIN [Concomitant]
  5. COMBIVENT [Concomitant]
  6. XANAX [Concomitant]
  7. FISH OIL [Concomitant]
  8. VITAMIN B-12 [Concomitant]
  9. VITAMINS [Concomitant]
  10. PAIN MEDICATION [Concomitant]
  11. HYDROCODONE [Concomitant]
  12. ALBUTEROL [Concomitant]

REACTIONS (15)
  - ABASIA [None]
  - APHASIA [None]
  - ASTHENIA [None]
  - BEDRIDDEN [None]
  - CONSTIPATION [None]
  - EMOTIONAL DISTRESS [None]
  - FATIGUE [None]
  - FEAR [None]
  - HEPATIC ENZYME INCREASED [None]
  - LYMPHADENOPATHY [None]
  - MENTAL IMPAIRMENT [None]
  - MYOCARDIAL INFARCTION [None]
  - NAUSEA [None]
  - OCULAR HYPERAEMIA [None]
  - SWELLING [None]
